FAERS Safety Report 14379781 (Version 9)
Quarter: 2019Q2

REPORT INFORMATION
  Report Type: Spontaneous
  Country: CZ (occurrence: CZ)
  Receive Date: 20180112
  Receipt Date: 20190408
  Transmission Date: 20190711
  Serious: Yes (Life-Threatening, Hospitalization, Disabling, Other)
  Sender: FDA-Public Use
  Company Number: CZ-MYLANLABS-2018M1002522

PATIENT
  Age: 51 Year
  Sex: Female

DRUGS (36)
  1. CODEINE PHOSPHATE HYDRATE [Interacting]
     Active Substance: CODEINE PHOSPHATE
     Dosage: UNK
     Route: 065
  2. MELOXICAM. [Concomitant]
     Active Substance: MELOXICAM
     Indication: ANALGESIC THERAPY
     Dosage: UNK
     Route: 048
  3. INDOMETACIN [Concomitant]
     Active Substance: INDOMETHACIN
     Indication: PAIN
     Dosage: UNK
     Route: 065
  4. LEVOFLOXACIN. [Interacting]
     Active Substance: LEVOFLOXACIN
     Indication: ANTIBIOTIC THERAPY
     Dosage: UNK
     Route: 065
  5. IVABRADINE [Concomitant]
     Active Substance: IVABRADINE
     Indication: SINUS TACHYCARDIA
     Dosage: 10 MG, QD
     Route: 065
  6. TRAMADOL. [Interacting]
     Active Substance: TRAMADOL
     Indication: PAIN
     Dosage: UNK
     Route: 048
  7. PAROXETINE. [Interacting]
     Active Substance: PAROXETINE
     Indication: MENTAL DISORDER
  8. METOCLOPRAMIDE. [Interacting]
     Active Substance: METOCLOPRAMIDE
     Indication: PRODUCT USED FOR UNKNOWN INDICATION
     Dosage: UNK
     Route: 065
  9. HYDROCORTISONE/PRAMOCAINE [Interacting]
     Active Substance: HYDROCORTISONE\PRAMOXINE
     Indication: PRODUCT USED FOR UNKNOWN INDICATION
     Dosage: UNK
  10. ESMOLOL [Concomitant]
     Active Substance: ESMOLOL HYDROCHLORIDE
     Indication: PRODUCT USED FOR UNKNOWN INDICATION
     Dosage: UNK
  11. CHLORPROTHIXENE HYDROCHLORIDE [Concomitant]
     Active Substance: CHLORPROTHIXENE HYDROCHLORIDE
     Indication: MENTAL DISORDER
  12. HYDROXYZINE [Interacting]
     Active Substance: HYDROXYZINE HYDROCHLORIDE
     Indication: PRODUCT USED FOR UNKNOWN INDICATION
     Dosage: UNK
  13. MIDAZOLAM [Concomitant]
     Active Substance: MIDAZOLAM HYDROCHLORIDE
     Indication: MYOCLONUS
     Dosage: 15 MG, QH
     Route: 065
  14. MIDAZOLAM [Concomitant]
     Active Substance: MIDAZOLAM HYDROCHLORIDE
     Indication: SEDATION
  15. INDOMETACIN [Concomitant]
     Active Substance: INDOMETHACIN
     Indication: ANALGESIC THERAPY
  16. TRAMADOL. [Interacting]
     Active Substance: TRAMADOL
     Dosage: 300 MILLIGRAM, QD
     Route: 065
  17. TRAZODONE [Suspect]
     Active Substance: TRAZODONE HYDROCHLORIDE
     Indication: PSYCHIATRIC SYMPTOM
     Dosage: 300 MG, QD
     Route: 065
  18. SUFENTANIL [Interacting]
     Active Substance: SUFENTANIL
     Indication: SEDATION
     Dosage: 10 ?G, QH
     Route: 065
  19. BUDESONIDE W/FORMOTEROL FUMARATE [Concomitant]
     Active Substance: BUDESONIDE\FORMOTEROL FUMARATE
     Indication: ASTHMA
     Dosage: 160/4.5 MG
     Route: 055
  20. VORICONAZOLE. [Concomitant]
     Active Substance: VORICONAZOLE
     Indication: CANDIDA INFECTION
  21. NACL [Concomitant]
     Active Substance: SODIUM CHLORIDE
     Indication: BRAIN OEDEMA
     Dosage: UNK
     Route: 065
  22. PARACETAMOL/TRAMADOL [Interacting]
     Active Substance: ACETAMINOPHEN\TRAMADOL
     Indication: PRODUCT USED FOR UNKNOWN INDICATION
     Dosage: UNK
     Route: 065
  23. TRAMADOL. [Interacting]
     Active Substance: TRAMADOL
     Indication: ANALGESIC THERAPY
     Dosage: 50 MG, UNK
     Route: 065
  24. PAROXETINE. [Interacting]
     Active Substance: PAROXETINE
     Indication: PSYCHIATRIC SYMPTOM
     Dosage: 60 MG, QD
     Route: 048
  25. ACETAMINOPHEN. [Interacting]
     Active Substance: ACETAMINOPHEN
     Indication: PYREXIA
     Dosage: 4 GRAM, QD
     Route: 065
  26. CODEINE PHOSPHATE HYDRATE [Interacting]
     Active Substance: CODEINE PHOSPHATE
     Indication: PAIN
     Dosage: UNK
     Route: 048
  27. CISATRACURIUM. [Concomitant]
     Active Substance: CISATRACURIUM
     Indication: PRODUCT USED FOR UNKNOWN INDICATION
     Dosage: 20 MG, UNK
  28. NOREPINEPHRINE. [Concomitant]
     Active Substance: NOREPINEPHRINE
     Indication: PRODUCT USED FOR UNKNOWN INDICATION
  29. VORICONAZOLE. [Concomitant]
     Active Substance: VORICONAZOLE
     Indication: PNEUMONIA
     Dosage: UNK
  30. MELOXICAM. [Concomitant]
     Active Substance: MELOXICAM
     Indication: PAIN
  31. TRAZODONE [Interacting]
     Active Substance: TRAZODONE HYDROCHLORIDE
     Indication: MENTAL DISORDER
  32. NOREPINEPHRINE. [Concomitant]
     Active Substance: NOREPINEPHRINE
     Indication: PRODUCT USED FOR UNKNOWN INDICATION
     Dosage: UNK
  33. PIPERACILLIN/TAZOBACTAM [Concomitant]
     Active Substance: PIPERACILLIN SODIUM\TAZOBACTAM SODIUM
     Indication: ANTIBIOTIC THERAPY
     Dosage: UNK
     Route: 065
  34. BROMAZEPAM [Concomitant]
     Active Substance: BROMAZEPAM
     Indication: PSYCHIATRIC SYMPTOM
     Dosage: 2 MG, QD
     Route: 048
  35. BROMAZEPAM [Concomitant]
     Active Substance: BROMAZEPAM
     Indication: MENTAL DISORDER
     Dosage: 2 MG, QD
     Route: 065
  36. CHLORPROTHIXENE HYDROCHLORIDE [Concomitant]
     Active Substance: CHLORPROTHIXENE HYDROCHLORIDE
     Indication: PSYCHIATRIC SYMPTOM
     Dosage: 50 MG, QD
     Route: 065

REACTIONS (28)
  - Apallic syndrome [Not Recovered/Not Resolved]
  - Circulatory collapse [Unknown]
  - Agitation [Unknown]
  - Arthralgia [Unknown]
  - Restlessness [Unknown]
  - Tremor [Unknown]
  - Pneumonia [Unknown]
  - Intentional product use issue [Not Recovered/Not Resolved]
  - Pyrexia [Unknown]
  - Pneumonia fungal [Unknown]
  - Myoclonus [Unknown]
  - Serotonin syndrome [Not Recovered/Not Resolved]
  - Hyperhidrosis [Unknown]
  - Oliguria [Unknown]
  - Leukocytosis [Unknown]
  - Drug ineffective [Not Recovered/Not Resolved]
  - Drug interaction [Unknown]
  - Depressed level of consciousness [Unknown]
  - Muscle spasms [Unknown]
  - Mydriasis [Unknown]
  - Rhabdomyolysis [Recovering/Resolving]
  - Sinus tachycardia [Unknown]
  - Myoglobin blood increased [Unknown]
  - Tachycardia [Unknown]
  - Delirium [Unknown]
  - Metabolic acidosis [Unknown]
  - Hypertension [Unknown]
  - Dyspnoea [Unknown]
